FAERS Safety Report 6217069-4 (Version None)
Quarter: 2009Q2

REPORT INFORMATION
  Report Type: 
  Country: None (occurrence: None)
  Receive Date: 20090606
  Receipt Date: 20090526
  Transmission Date: 20091009
  Serious: Yes (Other)
  Sender: FDA-Public Use
  Company Number: FR-PFIZER INC-2009206836

PATIENT
  Age: 21 Year

DRUGS (5)
  1. NEURONTIN [Suspect]
     Dosage: 800 MG, 2X/DAY
  2. MICROVAL [Suspect]
     Indication: CONTRACEPTION
     Dosage: 1 DF, 1X/DAY
     Dates: end: 20070219
  3. HUMALOG [Suspect]
     Indication: TYPE 2 DIABETES MELLITUS
  4. LANTUS [Suspect]
     Indication: TYPE 2 DIABETES MELLITUS
     Dosage: UNK
     Dates: end: 20070403
  5. UMULINE [Suspect]
     Indication: TYPE 2 DIABETES MELLITUS
     Dosage: UNK
     Dates: start: 20070403

REACTIONS (3)
  - DRUG ADMINISTRATION ERROR [None]
  - INTRA-UTERINE DEATH [None]
  - UNINTENDED PREGNANCY [None]
